FAERS Safety Report 9191135 (Version 2)
Quarter: 2013Q1

REPORT INFORMATION
  Report Type: Report from Study
  Country: NL (occurrence: NL)
  Receive Date: 20130326
  Receipt Date: 20130327
  Transmission Date: 20140127
  Serious: Yes (Hospitalization, Other)
  Sender: FDA-Public Use
  Company Number: NL-TEVA-387661ISR

PATIENT
  Sex: Male

DRUGS (11)
  1. COPAXONE [Suspect]
     Dosage: 20 MILLIGRAM DAILY;
     Route: 058
     Dates: start: 20120417
  2. TRAMADOL [Concomitant]
     Dosage: 400 MILLIGRAM DAILY;
  3. SEROQUEL [Concomitant]
     Dosage: LOW DOSE
  4. GABAPENTINE [Concomitant]
  5. DICLOFENAC [Concomitant]
     Dates: start: 20120803
  6. PARACETAMOL [Concomitant]
     Dosage: 4000 MILLIGRAM DAILY;
     Dates: start: 20120803
  7. PANTOPRAZOL [Concomitant]
     Dates: start: 20120803
  8. NOVORAPID [Concomitant]
     Dates: start: 20120803
  9. LANTUS [Concomitant]
     Dates: start: 20120803
  10. BACLOFEN [Concomitant]
     Dosage: 20 MILLIGRAM DAILY;
     Dates: start: 20130212
  11. FENTANYL [Concomitant]
     Dosage: PLASTERS
     Dates: start: 20130212

REACTIONS (3)
  - Pneumothorax [Not Recovered/Not Resolved]
  - Pulmonary function test abnormal [Not Recovered/Not Resolved]
  - Intervertebral discitis [Not Recovered/Not Resolved]
